FAERS Safety Report 10047289 (Version 1)
Quarter: 2014Q1

REPORT INFORMATION
  Report Type: Spontaneous
  Country: US (occurrence: US)
  Receive Date: 20140331
  Receipt Date: 20140331
  Transmission Date: 20141002
  Serious: No
  Sender: FDA-Public Use
  Company Number: US-MYLANLABS-2013S1027882

PATIENT
  Age: 42 Year
  Sex: Female
  Weight: 84.82 kg

DRUGS (11)
  1. FENTANYL TRANSDERMAL SYSTEM [Suspect]
     Indication: PAIN
     Dosage: CHANGED Q72H
     Route: 062
     Dates: start: 2012
  2. TOPAMAX [Concomitant]
  3. SEROQUEL [Concomitant]
  4. XANAX [Concomitant]
  5. AMBIEN [Concomitant]
  6. WELLBUTRIN [Concomitant]
  7. HYDROCODONE [Concomitant]
  8. LIDODERM PATCH [Concomitant]
  9. MELOXICAM [Concomitant]
  10. LYRICA [Concomitant]
  11. PRISTIQ [Concomitant]

REACTIONS (1)
  - False negative investigation result [Not Recovered/Not Resolved]
